FAERS Safety Report 12289715 (Version 1)
Quarter: 2016Q2

REPORT INFORMATION
  Report Type: Spontaneous
  Country: JP (occurrence: JP)
  Receive Date: 20160421
  Receipt Date: 20160421
  Transmission Date: 20160815
  Serious: Yes (Other)
  Sender: FDA-Public Use
  Company Number: JP-SUN PHARMACEUTICAL INDUSTRIES LTD-2016RR-115238

PATIENT
  Age: 16 Year
  Sex: Female

DRUGS (5)
  1. VALPROATE DE SODIUM [Suspect]
     Active Substance: VALPROATE SODIUM
     Indication: MIGRAINE
     Route: 065
  2. AMOXICILLIN/CLAVULANIC ACID [Suspect]
     Active Substance: AMOXICILLIN\CLAVULANIC ACID
     Indication: PYREXIA
     Dosage: 375 MG/DAY
     Route: 065
     Dates: start: 201309
  3. PARACETAMOL [Suspect]
     Active Substance: ACETAMINOPHEN
     Indication: PYREXIA
     Dosage: OCCASIONAL USE
     Route: 065
     Dates: start: 201309
  4. CEFCAPENE PIVOXIL HYDROCHLORIDE [Suspect]
     Active Substance: CEFCAPENE PIVOXIL HYDROCHLORIDE
     Indication: PYREXIA
     Dosage: 300 MG, UNK
     Route: 065
     Dates: start: 201309
  5. LEVOFLOXACIN. [Suspect]
     Active Substance: LEVOFLOXACIN
     Indication: PYREXIA
     Dosage: 500 MG, UNK
     Route: 065
     Dates: start: 201309

REACTIONS (1)
  - Tubulointerstitial nephritis and uveitis syndrome [Recovering/Resolving]

NARRATIVE: CASE EVENT DATE: 201402
